FAERS Safety Report 8595305-7 (Version None)
Quarter: 2012Q3

REPORT INFORMATION
  Report Type: 
  Country: None (occurrence: None)
  Receive Date: 20120807
  Receipt Date: 20120807
  Transmission Date: 20120928
  Serious: Yes (Hospitalization)
  Sender: FDA-Public Use
  Company Number: None

PATIENT
  Age: 15 Year
  Sex: Male
  Weight: 48 kg

DRUGS (1)
  1. ANAKINRA [Suspect]
     Indication: CHRONIC INFANTILE NEUROLOGICAL CUTANEOUS AND ARTICULAR SYNDROME
     Dosage: 4.5MG/KG/DAY DAILY ANAKINRA/KINERET

REACTIONS (2)
  - POST PROCEDURAL COMPLICATION [None]
  - LOBAR PNEUMONIA [None]
